FAERS Safety Report 8134699-3 (Version None)
Quarter: 2012Q1

REPORT INFORMATION
  Report Type: 
  Country: None (occurrence: None)
  Receive Date: 20120214
  Receipt Date: 20120208
  Transmission Date: 20120608
  Serious: Yes (Other)
  Sender: FDA-Public Use
  Company Number: US-AMGEN-USASP2012004282

PATIENT
  Age: 56 Year
  Sex: Female
  Weight: 58.957 kg

DRUGS (3)
  1. CELEXA [Concomitant]
     Dosage: 20 MG, UNK
  2. ERGOCALCIFEROL [Concomitant]
     Dosage: 50000 IU, UNK
     Dates: start: 20111103
  3. PROLIA [Suspect]
     Indication: OSTEOPOROSIS POSTMENOPAUSAL
     Dosage: 60 MG, Q6MO
     Route: 058
     Dates: start: 20111109

REACTIONS (1)
  - VITREOUS DETACHMENT [None]
